FAERS Safety Report 15158985 (Version 5)
Quarter: 2025Q3

REPORT INFORMATION
  Report Type: Spontaneous
  Country: EU (occurrence: EU)
  Receive Date: 20180718
  Receipt Date: 20250701
  Transmission Date: 20251021
  Serious: Yes (Other)
  Sender: MYLAN
  Company Number: EU-EMA-DD-20180410-RAKHIEVHPDD-093016

PATIENT
  Age: 20 Year
  Sex: Female

DRUGS (23)
  1. TACROLIMUS [Suspect]
     Active Substance: TACROLIMUS
     Indication: Bone marrow conditioning regimen
  2. TACROLIMUS [Suspect]
     Active Substance: TACROLIMUS
     Indication: Stem cell transplant
  3. TACROLIMUS [Suspect]
     Active Substance: TACROLIMUS
     Indication: Prophylaxis against graft versus host disease
  4. FLUDARABINE [Suspect]
     Active Substance: FLUDARABINE PHOSPHATE
     Indication: Bone marrow conditioning regimen
     Dosage: 30 MG/M2, PER DAY
  5. FLUDARABINE [Suspect]
     Active Substance: FLUDARABINE PHOSPHATE
     Dosage: 150 MILLILITRE PER SQUARE METRE(5 DOSAGES 30 MG/M2 DAILY)
  6. MYCOPHENOLATE MOFETIL [Suspect]
     Active Substance: MYCOPHENOLATE MOFETIL
     Indication: Bone marrow conditioning regimen
     Dosage: DAILY DOSE: (15 MG/KG, PER DAY) 45 MG/KG MILLIGRAM(S)/KILOGRAM EVERY DAY
  7. MYCOPHENOLATE MOFETIL [Suspect]
     Active Substance: MYCOPHENOLATE MOFETIL
     Indication: Prophylaxis against graft versus host disease
     Dosage: 15 MILLIGRAM/KILOGRAM, Q8H
  8. MYCOPHENOLATE MOFETIL [Suspect]
     Active Substance: MYCOPHENOLATE MOFETIL
     Indication: Stem cell transplant
  9. CYCLOPHOSPHAMIDE [Suspect]
     Active Substance: CYCLOPHOSPHAMIDE
     Indication: Prophylaxis against graft versus host disease
  10. CYCLOPHOSPHAMIDE [Suspect]
     Active Substance: CYCLOPHOSPHAMIDE
     Indication: Bone marrow conditioning regimen
     Dosage: 50 MG/KG, BID, 2 X 50 MG/KG/DAY ON DAYS +3 AND +4
  11. CYCLOPHOSPHAMIDE [Suspect]
     Active Substance: CYCLOPHOSPHAMIDE
     Indication: Stem cell transplant
     Dosage: 14.5 MG/KG, QD, 14.5 MG/KG/DAY ON DAYS -3 AND -2
  12. CYCLOPHOSPHAMIDE [Suspect]
     Active Substance: CYCLOPHOSPHAMIDE
     Dosage: 29 MILLIGRAM/KILOGRAM, QD(2 DOSAGES 14.5 MG/KG DAILY )
  13. CYCLOPHOSPHAMIDE [Suspect]
     Active Substance: CYCLOPHOSPHAMIDE
     Dosage: 50 MILLIGRAM/KILOGRAM, QD(50 MG/KG DAILY   )
  14. THIOTEPA [Suspect]
     Active Substance: THIOTEPA
     Indication: Bone marrow conditioning regimen
     Dosage: 20 MILLIGRAM/KILOGRAM, QD (DAILY DOSE: 20 MG/KG MILLIGRAM(S)/KILOGRAM EVERY DAY)
  15. THIOTEPA [Suspect]
     Active Substance: THIOTEPA
     Dosage: 5 MILLIGRAM/KILOGRAM, BID, 2X5 MG/KG/DAY ON DAY -4
  16. ALEMTUZUMAB [Suspect]
     Active Substance: ALEMTUZUMAB
     Indication: Bone marrow conditioning regimen
     Dosage: 0.2 MG/KG, PER DAY, 0.2 MG/KG/DAY ON DAYS -9 AND -8
  17. ALEMTUZUMAB [Suspect]
     Active Substance: ALEMTUZUMAB
     Dosage: 0.4 MILLIGRAM/KILOGRAM, QD(2 DOSAGES .2 MG/KG DAILY  )
  18. TREOSULFAN [Suspect]
     Active Substance: TREOSULFAN
     Indication: Bone marrow conditioning regimen
     Dosage: 14 G/M2, 14 G/M2/DAY ON DAYS -7 TO -5
  19. TREOSULFAN [Suspect]
     Active Substance: TREOSULFAN
     Dosage: 42000 MILLIGRAM/SQ. METER(3 DOSAGES 14000 MG/M2 DAILY   )
  20. HYDROXYUREA [Concomitant]
     Active Substance: HYDROXYUREA
     Indication: Sickle cell disease
  21. GRANULOCYTE COLONY-STIMULATING FACTOR NOS [Concomitant]
     Active Substance: GRANULOCYTE COLONY-STIMULATING FACTOR NOS
     Indication: Prophylaxis against graft versus host disease
     Dosage: 5 MICROGRAM, QD, 5 G/KG/DAY FROM DAY +5 UNTIL ENGRAFTMENT
  22. LEVETIRACETAM [Concomitant]
     Active Substance: LEVETIRACETAM
     Indication: Prophylaxis
  23. RITUXIMAB [Concomitant]
     Active Substance: RITUXIMAB

REACTIONS (4)
  - Varicella zoster virus infection [Recovered/Resolved]
  - Lymphopenia [Unknown]
  - Citrobacter infection [Unknown]
  - Product use in unapproved indication [Unknown]
